FAERS Safety Report 10295070 (Version 7)
Quarter: 2015Q2

REPORT INFORMATION
  Report Type: Spontaneous
  Country: US (occurrence: US)
  Receive Date: 20140710
  Receipt Date: 20150623
  Transmission Date: 20150821
  Serious: Yes (Hospitalization, Other)
  Sender: FDA-Public Use
  Company Number: US-009507513-1407USA001660

PATIENT
  Sex: Male
  Weight: 78.5 kg

DRUGS (4)
  1. PROSCAR [Suspect]
     Active Substance: FINASTERIDE
     Indication: ALOPECIA
  2. PROSCAR [Suspect]
     Active Substance: FINASTERIDE
     Indication: BENIGN PROSTATIC HYPERPLASIA
     Dosage: 5 MG, QD
     Route: 048
     Dates: start: 20020602, end: 201406
  3. FINASTERIDE. [Suspect]
     Active Substance: FINASTERIDE
     Dosage: 5 MG, QD
     Route: 048
     Dates: start: 20060815, end: 20140114
  4. DIURETIC (UNSPECIFIED) [Concomitant]
     Active Substance: UNSPECIFIED INGREDIENT
     Dosage: UNK
     Dates: start: 20050107, end: 20100618

REACTIONS (25)
  - Carotid artery stenosis [Unknown]
  - Loss of libido [Not Recovered/Not Resolved]
  - Cerebrovascular accident [Unknown]
  - Chronic obstructive pulmonary disease [Not Recovered/Not Resolved]
  - Chronic obstructive pulmonary disease [Not Recovered/Not Resolved]
  - Hepatitis A [Unknown]
  - Coccidioidomycosis [Unknown]
  - Hypertension [Unknown]
  - Intentional product misuse [Unknown]
  - Spinal osteoarthritis [Unknown]
  - Sexual dysfunction [Not Recovered/Not Resolved]
  - Diabetes mellitus [Not Recovered/Not Resolved]
  - Exostosis [Unknown]
  - Erectile dysfunction [Not Recovered/Not Resolved]
  - Coronary artery disease [Unknown]
  - Peripheral vascular disorder [Unknown]
  - Transient ischaemic attack [Unknown]
  - Aortic stenosis [Unknown]
  - Prostate cancer stage II [Not Recovered/Not Resolved]
  - Prostate cancer recurrent [Not Recovered/Not Resolved]
  - Benign prostatic hyperplasia [Unknown]
  - Coronary arterial stent insertion [Unknown]
  - Glaucoma [Unknown]
  - Dyspnoea [Unknown]
  - Hyperlipidaemia [Not Recovered/Not Resolved]

NARRATIVE: CASE EVENT DATE: 20020602
